FAERS Safety Report 7547264-3 (Version None)
Quarter: 2011Q2

REPORT INFORMATION
  Report Type: 
  Country: None (occurrence: None)
  Receive Date: 20110614
  Receipt Date: 20110607
  Transmission Date: 20111010
  Serious: Yes (Death, Other)
  Sender: FDA-Public Use
  Company Number: CZ-CELGENEUS-217-50794-11061232

PATIENT

DRUGS (1)
  1. VIDAZA [Suspect]
     Route: 050

REACTIONS (6)
  - FEBRILE NEUTROPENIA [None]
  - LOCAL REACTION [None]
  - DISEASE PROGRESSION [None]
  - LEUKOCYTOSIS [None]
  - HAEMATOTOXICITY [None]
  - GASTROINTESTINAL DISORDER [None]
